FAERS Safety Report 8209127-X (Version None)
Quarter: 2012Q1

REPORT INFORMATION
  Report Type: 
  Country: None (occurrence: None)
  Receive Date: 20120314
  Receipt Date: 20100923
  Transmission Date: 20120608
  Serious: Yes (Hospitalization)
  Sender: FDA-Public Use
  Company Number: US-BAYER-201032448NA

PATIENT
  Age: 32 Year
  Sex: Female
  Weight: 61.818 kg

DRUGS (8)
  1. YAZ [Suspect]
     Indication: PREMENSTRUAL SYNDROME
  2. ASPIRIN [Concomitant]
     Dosage: 325 MG (DAILY DOSE), , ORAL
     Route: 048
     Dates: start: 20100324
  3. BENADRYL [Concomitant]
     Dosage: 1-2 TABS Q8 HRS
     Route: 048
  4. LEVOTHYROXINE SODIUM [Concomitant]
     Dosage: 75 ?G (DAILY DOSE), QD, ORAL
     Route: 048
  5. YAZ [Suspect]
     Indication: CONTRACEPTION
     Dosage: UNK UNK, UNK
     Route: 048
     Dates: start: 20080101, end: 20100315
  6. YAZ [Suspect]
     Indication: ACNE
  7. IBUPROFEN [Concomitant]
     Route: 048
  8. REGLAN [Concomitant]
     Dosage: 1-2 TABS Q  8 HRS
     Route: 048

REACTIONS (10)
  - HEMIPARESIS [None]
  - VERTEBRAL ARTERY DISSECTION [None]
  - BLINDNESS [None]
  - DIZZINESS [None]
  - DYSGEUSIA [None]
  - NAUSEA [None]
  - PARAESTHESIA [None]
  - ISCHAEMIC STROKE [None]
  - VOMITING [None]
  - MIGRAINE [None]
